FAERS Safety Report 16393473 (Version 1)
Quarter: 2019Q2

REPORT INFORMATION
  Report Type: Spontaneous
  Country: US (occurrence: US)
  Receive Date: 20190430
  Receipt Date: 20190430
  Transmission Date: 20190711
  Serious: Yes (Congenital Anomaly)
  Sender: FDA-Public Use
  Company Number: None

PATIENT
  Age: 46 Year
  Sex: Male
  Weight: 89.81 kg

DRUGS (1)
  1. NALTREXONE 50MG TABS [Suspect]
     Active Substance: NALTREXONE
     Indication: DRUG DEPENDENCE
     Route: 048

REACTIONS (3)
  - Nausea [None]
  - Sensory disturbance [None]
  - Palpitations [None]
